FAERS Safety Report 25952288 (Version 1)
Quarter: 2025Q4

REPORT INFORMATION
  Report Type: Spontaneous
  Country: US (occurrence: US)
  Receive Date: 20251023
  Receipt Date: 20251023
  Transmission Date: 20260118
  Serious: Yes (Hospitalization)
  Sender: ROCHE
  Company Number: US-ROCHE-10000414073

PATIENT
  Sex: Female

DRUGS (2)
  1. XOLAIR PFS [Suspect]
     Active Substance: OMALIZUMAB
     Indication: Asthma
     Dosage: (STRENGTH: 300MH/2ML AND 75MG/0.5ML)
     Route: 058
     Dates: start: 202403
  2. XOLAIR PFS [Suspect]
     Active Substance: OMALIZUMAB
     Indication: Urticaria

REACTIONS (6)
  - Seizure [Recovered/Resolved]
  - Nausea [Unknown]
  - Vomiting [Unknown]
  - Hypertension [Unknown]
  - Dehydration [Unknown]
  - Renal failure [Unknown]
